FAERS Safety Report 6126087-6 (Version None)
Quarter: 2009Q1

REPORT INFORMATION
  Report Type: 
  Country: None (occurrence: None)
  Receive Date: 20090320
  Receipt Date: 20090318
  Transmission Date: 20090719
  Serious: Yes (Hospitalization)
  Sender: FDA-Public Use
  Company Number: US-ELI_LILLY_AND_COMPANY-US200812003454

PATIENT
  Sex: Female
  Weight: 81.633 kg

DRUGS (4)
  1. BYETTA [Suspect]
     Indication: TYPE 2 DIABETES MELLITUS
     Dosage: 5 UG, 2/D
     Dates: start: 20060522, end: 20060613
  2. BYETTA [Suspect]
     Dosage: 10 UG, 2/D
     Dates: start: 20060613, end: 20081211
  3. METFORMIN HCL [Concomitant]
     Indication: TYPE 2 DIABETES MELLITUS
     Dosage: UNK, UNKNOWN
     Route: 048
     Dates: start: 20041230
  4. FENOFIBRATE [Concomitant]
     Dosage: 145 MG, UNK

REACTIONS (2)
  - PANCREATITIS [None]
  - WEIGHT DECREASED [None]
